FAERS Safety Report 7885300-5 (Version None)
Quarter: 2011Q4

REPORT INFORMATION
  Report Type: 
  Country: None (occurrence: None)
  Receive Date: 20111102
  Receipt Date: 20111026
  Transmission Date: 20120403
  Serious: Yes (Other)
  Sender: FDA-Public Use
  Company Number: US-PFIZER INC-2011262466

PATIENT
  Sex: Female

DRUGS (3)
  1. GLIPIZIDE [Suspect]
     Dosage: UNK
     Dates: end: 20110101
  2. SITAGLIPTIN AND METFORMIN HYDROCHLORIDE [Suspect]
     Dosage: UNK
     Dates: end: 20110101
  3. INSULIN GLARGINE [Suspect]
     Indication: TYPE 2 DIABETES MELLITUS
     Dosage: 40 UNITS DAILY
     Route: 058
     Dates: start: 20110801

REACTIONS (1)
  - DIABETES MELLITUS INADEQUATE CONTROL [None]
